FAERS Safety Report 4963125-8 (Version None)
Quarter: 2006Q1

REPORT INFORMATION
  Report Type: 
  Country: None (occurrence: None)
  Receive Date: 20060331
  Receipt Date: 20060317
  Transmission Date: 20060701
  Serious: Yes (Death)
  Sender: FDA-Public Use
  Company Number: 2006-00646

PATIENT
  Age: 82 Year
  Sex: Male

DRUGS (2)
  1. VELCADE [Suspect]
     Indication: ACUTE MYELOID LEUKAEMIA
     Dosage: IV BOLUS
     Route: 040
  2. DOXORUBICIN(DOXORUBICIN) [Suspect]
     Indication: ACUTE MYELOID LEUKAEMIA
     Dosage: 30,00 MG/M2, INTRAVENOUS
     Route: 042

REACTIONS (2)
  - PNEUMONIA [None]
  - RESPIRATORY FAILURE [None]
